FAERS Safety Report 13291455 (Version 2)
Quarter: 2017Q1

REPORT INFORMATION
  Report Type: Report from Study
  Country: US (occurrence: CA)
  Receive Date: 20170302
  Receipt Date: 20170310
  Transmission Date: 20170428
  Serious: Yes (Hospitalization, Other)
  Sender: FDA-Public Use
  Company Number: US-SUNOVION-2017SUN000944

PATIENT
  Age: 60 Year
  Sex: Female

DRUGS (11)
  1. GLYCOPYRROLATE. [Suspect]
     Active Substance: GLYCOPYRROLATE
     Indication: PRODUCT USED FOR UNKNOWN INDICATION
     Dosage: 50 ?G, UNK
     Route: 055
     Dates: start: 201507
  2. XOLAIR [Suspect]
     Active Substance: OMALIZUMAB
     Indication: ASTHMA
     Dosage: 375 MG, BIW
     Route: 058
     Dates: start: 20151113
  3. THEOPHYLLINE [Concomitant]
     Active Substance: THEOPHYLLINE ANHYDROUS
  4. XOLAIR [Suspect]
     Active Substance: OMALIZUMAB
     Dosage: UNK  REGIMEN #2
     Route: 058
     Dates: start: 20170208
  5. ACLASTA [Suspect]
     Active Substance: ZOLEDRONIC ACID
     Indication: PRODUCT USED FOR UNKNOWN INDICATION
  6. VENTOLIN [Concomitant]
     Active Substance: ALBUTEROL SULFATE
     Dosage: UNKNOWN
  7. SINGULAIR [Concomitant]
     Active Substance: MONTELUKAST SODIUM
     Dosage: UNKNOWN
  8. XOLAIR [Suspect]
     Active Substance: OMALIZUMAB
     Dosage: UNK  REGIMEN #3
     Route: 058
     Dates: start: 20170216
  9. PREDNISONE. [Concomitant]
     Active Substance: PREDNISONE
  10. ZENHALE [Concomitant]
     Active Substance: FORMOTEROL FUMARATE\MOMETASONE FUROATE
     Dosage: UNKNOWN
  11. ALVESCO [Concomitant]
     Active Substance: CICLESONIDE
     Dosage: UNKNOWN

REACTIONS (6)
  - Wheezing [Unknown]
  - Asthma [Unknown]
  - Blood pressure increased [Unknown]
  - Hypoventilation [Unknown]
  - Heart rate decreased [Unknown]
  - Dyspnoea [Unknown]

NARRATIVE: CASE EVENT DATE: 201702
